FAERS Safety Report 5443313-7 (Version None)
Quarter: 2007Q3

REPORT INFORMATION
  Report Type: 
  Country: None (occurrence: None)
  Receive Date: 20070831
  Receipt Date: 20070817
  Transmission Date: 20080115
  Serious: Yes (Disabling)
  Sender: FDA-Public Use
  Company Number: S07-UKI-03646-01

PATIENT
  Age: 32 Year
  Sex: Female

DRUGS (1)
  1. CITALOPRAM HYDROBROMIDE [Suspect]
     Dosage: 20 MG BID PO
     Route: 048
     Dates: end: 20070101

REACTIONS (1)
  - VISUAL FIELD DEFECT [None]
